FAERS Safety Report 8576360-7 (Version None)
Quarter: 2012Q3

REPORT INFORMATION
  Report Type: 
  Country: None (occurrence: None)
  Receive Date: 20120725
  Receipt Date: 20120710
  Transmission Date: 20120928
  Serious: Yes (Other)
  Sender: FDA-Public Use
  Company Number: FK201201974

PATIENT
  Age: 8 Year
  Sex: Female

DRUGS (4)
  1. ETOPOSIDE [Suspect]
     Indication: NEUROBLASTOMA
     Dosage: 200 MG/M2, 1 IN 1 D
  2. MELPHALAN HYDROCHLORIDE [Suspect]
     Indication: NEUROBLASTOMA
     Dosage: 45 MG/M2, 1 IN 1 D
  3. CARBOPLATIN [Suspect]
     Indication: NEUROBLASTOMA
     Dosage: 300 MG/M2, 1 IN 1 D
  4. IOBENGUANE SULFATE I 131 [Suspect]
     Indication: NEUROBLASTOMA
     Dosage: 100 MCI (10 MCI/KG)

REACTIONS (8)
  - HAEMORRHAGE INTRACRANIAL [None]
  - MUCOSAL INFLAMMATION [None]
  - HAEMATURIA [None]
  - GASTROINTESTINAL HAEMORRHAGE [None]
  - HYPERTENSION [None]
  - GRAFT VERSUS HOST DISEASE [None]
  - RASH ERYTHEMATOUS [None]
  - BACTERIURIA [None]
